FAERS Safety Report 6750384-4 (Version None)
Quarter: 2010Q2

REPORT INFORMATION
  Report Type: 
  Country: None (occurrence: None)
  Receive Date: 20100601
  Receipt Date: 20100524
  Transmission Date: 20101027
  Serious: Yes (Other)
  Sender: FDA-Public Use
  Company Number: AU-AMGEN-KDL407684

PATIENT
  Sex: Male

DRUGS (5)
  1. NPLATE [Suspect]
     Indication: IDIOPATHIC THROMBOCYTOPENIC PURPURA
     Route: 058
     Dates: start: 20090501
  2. ACETAMINOPHEN W/ CODEINE [Concomitant]
  3. TRAMADOL [Concomitant]
  4. CALCIUM CARBONATE [Concomitant]
  5. GLUCOSAMINE [Concomitant]

REACTIONS (1)
  - GYNAECOMASTIA [None]
